FAERS Safety Report 23904033 (Version 1)
Quarter: 2024Q2

REPORT INFORMATION
  Report Type: Other
  Country: FR (occurrence: FR)
  Receive Date: 20240527
  Receipt Date: 20240527
  Transmission Date: 20240716
  Serious: Yes (Hospitalization)
  Sender: FDA-Public Use
  Company Number: None

PATIENT

DRUGS (1)
  1. RUXOLITINIB [Suspect]
     Active Substance: RUXOLITINIB
     Indication: Autoimmune haemolytic anaemia
     Dosage: 10 MG, Q12H
     Route: 048
     Dates: start: 20220502, end: 202311

REACTIONS (1)
  - Histoplasmosis disseminated [Recovering/Resolving]

NARRATIVE: CASE EVENT DATE: 20231001
